FAERS Safety Report 6737312-2 (Version None)
Quarter: 2010Q2

REPORT INFORMATION
  Report Type: 
  Country: None (occurrence: None)
  Receive Date: 20100524
  Receipt Date: 20100513
  Transmission Date: 20101027
  Serious: No
  Sender: FDA-Public Use
  Company Number: 2009BI032820

PATIENT
  Age: 46 Year
  Sex: Female

DRUGS (3)
  1. TYSABRI [Suspect]
     Indication: MULTIPLE SCLEROSIS
     Route: 042
     Dates: start: 20050207
  2. TYSABRI [Suspect]
     Route: 042
     Dates: start: 20061017, end: 20080409
  3. TYSABRI [Suspect]
     Route: 042
     Dates: start: 20090826, end: 20090928

REACTIONS (4)
  - ANXIETY [None]
  - OEDEMA PERIPHERAL [None]
  - PAIN [None]
  - SERUM SICKNESS [None]
